FAERS Safety Report 7126121-0 (Version None)
Quarter: 2010Q4

REPORT INFORMATION
  Report Type: 
  Country: None (occurrence: None)
  Receive Date: 20101129
  Receipt Date: 20101118
  Transmission Date: 20110411
  Serious: Yes (Other)
  Sender: FDA-Public Use
  Company Number: US-JNJFOC-20100809129

PATIENT
  Sex: Female

DRUGS (3)
  1. STELARA [Suspect]
     Indication: PSORIASIS
     Route: 058
  2. LEXAPRO [Concomitant]
  3. FOCALIN [Concomitant]

REACTIONS (3)
  - PHARYNGITIS STREPTOCOCCAL [None]
  - PLEURISY [None]
  - PNEUMONIA [None]
